FAERS Safety Report 4731362-3 (Version None)
Quarter: 2005Q3

REPORT INFORMATION
  Report Type: 
  Country: None (occurrence: None)
  Receive Date: 20050801
  Receipt Date: 20050801
  Transmission Date: 20060218
  Serious: Yes (Life-Threatening)
  Sender: FDA-Public Use
  Company Number: None

PATIENT
  Age: 56 Year
  Sex: Female
  Weight: 56 kg

DRUGS (14)
  1. DIGOXIN [Suspect]
     Indication: ATRIAL FIBRILLATION
     Dosage: 0.125MG  Q18H, THEN     INTRAVENOUS
     Route: 042
     Dates: start: 20041231, end: 20050125
  2. HEPARIN [Suspect]
     Indication: MYOCARDIAL INFARCTION
     Dosage: STANDARD   INTRAVENOUS
     Route: 042
     Dates: start: 20041221, end: 20050101
  3. AMIODARONE [Concomitant]
  4. DOPAMINE HCL [Concomitant]
  5. ARGATROBAN [Concomitant]
  6. INSULIN [Concomitant]
  7. SERTRALINE HCL [Concomitant]
  8. PROTONIX [Concomitant]
  9. ZOCOR [Concomitant]
  10. COMBIVENT [Concomitant]
  11. ACETAMINOPHN [Concomitant]
  12. LORAZEPAM [Concomitant]
  13. ZOFRAN [Concomitant]
  14. PROCRIT [Concomitant]

REACTIONS (8)
  - ANTIBODY TEST POSITIVE [None]
  - BRADYCARDIA [None]
  - COAGULOPATHY [None]
  - DIFFICULT TO WEAN FROM VENTILATOR [None]
  - HAEMODIALYSIS [None]
  - HEPARIN-INDUCED THROMBOCYTOPENIA [None]
  - HYPOTENSION [None]
  - LEG AMPUTATION [None]
